FAERS Safety Report 24660267 (Version 1)
Quarter: 2024Q4

REPORT INFORMATION
  Report Type: Spontaneous
  Country: US (occurrence: None)
  Receive Date: 20241125
  Receipt Date: 20241125
  Transmission Date: 20250115
  Serious: Yes (Death)
  Sender: Public
  Company Number: None

PATIENT
  Age: 77 Year
  Sex: Male

DRUGS (1)
  1. NYVEPRIA [Suspect]
     Active Substance: PEGFILGRASTIM-APGF
     Indication: Agranulocytosis
     Dosage: 6MG EVERY 3 WEEKS
     Dates: start: 20240725

REACTIONS (1)
  - Death [None]

NARRATIVE: CASE EVENT DATE: 20241120
